FAERS Safety Report 22613926 (Version 1)
Quarter: 2023Q2

REPORT INFORMATION
  Report Type: Spontaneous
  Country: CH (occurrence: CH)
  Receive Date: 20230619
  Receipt Date: 20230619
  Transmission Date: 20230721
  Serious: Yes (Hospitalization, Other)
  Sender: FDA-Public Use
  Company Number: None

PATIENT
  Age: 68 Year
  Sex: Female
  Weight: 74 kg

DRUGS (16)
  1. CAPECITABINE [Suspect]
     Active Substance: CAPECITABINE
     Indication: Cholangiocarcinoma
     Route: 048
     Dates: start: 20221206, end: 20230503
  2. CAPECITABINE [Suspect]
     Active Substance: CAPECITABINE
     Indication: Cholangiocarcinoma
     Route: 048
     Dates: start: 20230512, end: 20230512
  3. FLUOROURACIL [Suspect]
     Active Substance: FLUOROURACIL
     Indication: Cholangiocarcinoma
     Route: 042
     Dates: start: 20230517, end: 20230517
  4. FLUOROURACIL [Suspect]
     Active Substance: FLUOROURACIL
     Indication: Cholangiocarcinoma
     Route: 042
     Dates: start: 20230518, end: 20230518
  5. LEUCOVORIN CALCIUM [Concomitant]
     Active Substance: LEUCOVORIN CALCIUM
     Dates: start: 20230517, end: 20230517
  6. ESTRIOL [Concomitant]
     Active Substance: ESTRIOL
     Dosage: 2X PRO WOCHE
  7. CHOLECALCIFEROL [Concomitant]
     Active Substance: CHOLECALCIFEROL
  8. ONDANSETRON [Concomitant]
     Active Substance: ONDANSETRON
     Dosage: 4 TIMES A DAY
  9. MAGNESIUM ASPARTATE HYDROCHLORIDE [Concomitant]
     Active Substance: MAGNESIUM ASPARTATE HYDROCHLORIDE
  10. Paspertin [Concomitant]
     Dosage: 1-1-1-0
  11. PANTOZOL [Concomitant]
     Active Substance: PANTOPRAZOLE SODIUM
     Dosage: 1-0-0-0 ?DAILY DOSE: 40 MILLIGRAM
  12. Novalgin [Concomitant]
     Indication: Pain
     Dosage: 1-1-1-1 FOR PAIN
  13. METAMIZOLE [Concomitant]
     Active Substance: METAMIZOLE
     Indication: Pain
     Dosage: 2-2-2-2
  14. BACTRIM [Concomitant]
     Active Substance: SULFAMETHOXAZOLE\TRIMETHOPRIM
     Dosage: 3 TIMES A WEEK
  15. VALTREX [Concomitant]
     Active Substance: VALACYCLOVIR HYDROCHLORIDE
     Dosage: 2 TIMES ?DAILY DOSE: 1000 MILLIGRAM
  16. ATACAND [Concomitant]
     Active Substance: CANDESARTAN CILEXETIL
     Indication: Hypertension
     Dosage: DAILY DOSE: 16 MILLIGRAM
     Dates: start: 20221219, end: 20230118

REACTIONS (5)
  - Autoimmune haemolytic anaemia [Recovering/Resolving]
  - Deep vein thrombosis [Unknown]
  - Ulcer [Unknown]
  - Hiatus hernia [Unknown]
  - Product use in unapproved indication [Unknown]

NARRATIVE: CASE EVENT DATE: 20221206
